FAERS Safety Report 21831564 (Version 3)
Quarter: 2024Q2

REPORT INFORMATION
  Report Type: Spontaneous
  Country: US (occurrence: US)
  Receive Date: 20230106
  Receipt Date: 20240502
  Transmission Date: 20240716
  Serious: Yes (Other)
  Sender: FDA-Public Use
  Company Number: US-PFIZER INC-PV202200118257

PATIENT
  Age: 64 Year
  Sex: Female

DRUGS (1)
  1. XELJANZ XR [Suspect]
     Active Substance: TOFACITINIB CITRATE
     Indication: Rheumatoid arthritis
     Dosage: 11 MG, 1X/DAY
     Route: 048

REACTIONS (5)
  - Condition aggravated [Unknown]
  - Red blood cell sedimentation rate increased [Unknown]
  - Fibromyalgia [Unknown]
  - Urinary tract disorder [Unknown]
  - Expired product administered [Unknown]

NARRATIVE: CASE EVENT DATE: 20230103
